FAERS Safety Report 4428179-6 (Version None)
Quarter: 2004Q3

REPORT INFORMATION
  Report Type: 
  Country: None (occurrence: None)
  Receive Date: 20040726
  Receipt Date: 20040216
  Transmission Date: 20050211
  Serious: No
  Sender: FDA-Public Use
  Company Number: USA031050555

PATIENT
  Age: 64 Year
  Sex: Female
  Weight: 73 kg

DRUGS (3)
  1. FORTEO [Suspect]
     Indication: OSTEOPOROSIS
     Dosage: 20 UG/DAY
     Dates: start: 20031202
  2. EVISTA [Suspect]
     Indication: OSTEOPOROSIS
     Dates: start: 19990101
  3. CALCIUM [Concomitant]

REACTIONS (3)
  - CARDIAC MURMUR [None]
  - OVERDOSE [None]
  - PALPITATIONS [None]
